FAERS Safety Report 26134265 (Version 1)
Quarter: 2025Q4

REPORT INFORMATION
  Report Type: Spontaneous
  Country: EU (occurrence: EU)
  Receive Date: 20251209
  Receipt Date: 20251209
  Transmission Date: 20260117
  Serious: Yes (Life-Threatening, Other)
  Sender: AUROBINDO
  Company Number: EU-MINISAL02-1069117

PATIENT
  Age: 31 Year
  Sex: Female
  Weight: 50 kg

DRUGS (1)
  1. ACETAMINOPHEN [Suspect]
     Active Substance: ACETAMINOPHEN
     Indication: Intentional self-injury
     Dosage: 500 MILLIGRAM (TAKING AN INAPPROPRIATE NUMBER OF PARACETAMOL 500 MG TABLETS (APPROXIMATELY 10-14 TABLETS) TOGETHER WITH ALCOHOL FOR THE PURPOSE OF SELF-HARM)
     Dates: start: 20250918, end: 20250918

REACTIONS (2)
  - Intentional self-injury [Recovered/Resolved]
  - Toxicity to various agents [Recovered/Resolved]

NARRATIVE: CASE EVENT DATE: 20250918
